FAERS Safety Report 6980995-2 (Version None)
Quarter: 2010Q3

REPORT INFORMATION
  Report Type: 
  Country: None (occurrence: None)
  Receive Date: 20100914
  Receipt Date: 20100910
  Transmission Date: 20110219
  Serious: Yes (Hospitalization)
  Sender: FDA-Public Use
  Company Number: B0674062A

PATIENT
  Sex: Female

DRUGS (5)
  1. AUGMENTIN '125' [Suspect]
     Indication: PRODUCT USED FOR UNKNOWN INDICATION
     Dosage: 1SAC THREE TIMES PER DAY
     Route: 048
     Dates: start: 20100726, end: 20100729
  2. ZALDIAR [Suspect]
     Dosage: 1UNIT THREE TIMES PER DAY
     Route: 048
     Dates: start: 20100726, end: 20100729
  3. BETADINE [Suspect]
     Indication: PRODUCT USED FOR UNKNOWN INDICATION
     Route: 061
     Dates: start: 20100726, end: 20100729
  4. SIMVASTATIN [Concomitant]
     Dosage: 40MG PER DAY
     Route: 048
     Dates: end: 20100729
  5. IRBESARTAN [Concomitant]
     Dosage: 150MG PER DAY
     Route: 048

REACTIONS (8)
  - BURNING SENSATION [None]
  - EYE IRRITATION [None]
  - ORAL DISCOMFORT [None]
  - PRURITUS [None]
  - PURPURA [None]
  - RASH MACULO-PAPULAR [None]
  - SKIN LESION [None]
  - TOXIC SKIN ERUPTION [None]
